FAERS Safety Report 14918333 (Version 1)
Quarter: 2018Q2

REPORT INFORMATION
  Report Type: Report from Study
  Country: BR (occurrence: BR)
  Receive Date: 20180521
  Receipt Date: 20180521
  Transmission Date: 20180711
  Serious: Yes (Other)
  Sender: FDA-Public Use
  Company Number: PHHY2018BR001262

PATIENT
  Age: 74 Year
  Sex: Female
  Weight: 52.5 kg

DRUGS (1)
  1. TRAVATAN [Suspect]
     Active Substance: TRAVOPROST
     Indication: GLAUCOMA
     Dosage: 1 GTT, QD (EVERY 24 HOUR AT NIGHT, ONE DROP IN THE RIGHT EYE)
     Route: 047
     Dates: start: 2000

REACTIONS (2)
  - Visual impairment [Not Recovered/Not Resolved]
  - Transplant rejection [Unknown]

NARRATIVE: CASE EVENT DATE: 201710
